FAERS Safety Report 21625130 (Version 1)
Quarter: 2022Q4

REPORT INFORMATION
  Report Type: Spontaneous
  Country: FR (occurrence: FR)
  Receive Date: 20221122
  Receipt Date: 20221122
  Transmission Date: 20230113
  Serious: Yes (Hospitalization)
  Sender: FDA-Public Use
  Company Number: FR-LABOXO-202200569

PATIENT
  Age: 2 Month
  Sex: Female
  Weight: 4.2 kg

DRUGS (4)
  1. ACEBUTOLOL [Suspect]
     Active Substance: ACEBUTOLOL
     Indication: Malignant hypertension
     Dosage: UNK(UP TO 10 MG/KG/DAY)
     Route: 048
  2. AMLODIPINE [Suspect]
     Active Substance: AMLODIPINE BESYLATE
     Indication: Malignant hypertension
     Dosage: UNK(UP TO 0.6 MG/KG/DAY)
     Route: 048
  3. NICARDIPINE [Suspect]
     Active Substance: NICARDIPINE
     Indication: Malignant hypertension
     Dosage: UNK(UP TO 5 ?G/KG/MIN)
     Route: 042
  4. MILRINONE [Concomitant]
     Active Substance: MILRINONE
     Indication: Product used for unknown indication
     Dosage: UNK(UP TO 0.5 ?G/KG/MIN)
     Route: 042

REACTIONS (1)
  - Drug ineffective [Unknown]
